FAERS Safety Report 14215278 (Version 1)
Quarter: 2017Q4

REPORT INFORMATION
  Report Type: Spontaneous
  Country: PL (occurrence: PL)
  Receive Date: 20171122
  Receipt Date: 20171122
  Transmission Date: 20180321
  Serious: Yes (Hospitalization)
  Sender: FDA-Public Use
  Company Number: PL-JNJFOC-20171032064

PATIENT
  Age: 63 Year
  Sex: Male
  Weight: 90 kg

DRUGS (1)
  1. IMBRUVICA [Suspect]
     Active Substance: IBRUTINIB
     Indication: CHRONIC LYMPHOCYTIC LEUKAEMIA
     Route: 048
     Dates: start: 201507, end: 20160109

REACTIONS (1)
  - Pyoderma gangrenosum [Recovering/Resolving]

NARRATIVE: CASE EVENT DATE: 201511
